FAERS Safety Report 21698698 (Version 1)
Quarter: 2022Q4

REPORT INFORMATION
  Report Type: Spontaneous
  Country: GB (occurrence: GB)
  Receive Date: 20221208
  Receipt Date: 20221208
  Transmission Date: 20230113
  Serious: Yes (Other)
  Sender: FDA-Public Use
  Company Number: GB-TORRENT-00029675

PATIENT
  Sex: Male

DRUGS (1)
  1. LAMOTRIGINE [Suspect]
     Active Substance: LAMOTRIGINE
     Indication: Product used for unknown indication
     Dosage: UNK
     Route: 065

REACTIONS (10)
  - Abnormal dreams [Unknown]
  - Dyschromatopsia [Unknown]
  - Hyperhidrosis [Unknown]
  - Hypersensitivity [Unknown]
  - Insomnia [Unknown]
  - Nightmare [Unknown]
  - Miosis [Unknown]
  - Musical ear syndrome [Unknown]
  - Partial seizures [Unknown]
  - Product substitution issue [Unknown]
